FAERS Safety Report 5133081-0 (Version None)
Quarter: 2006Q4

REPORT INFORMATION
  Report Type: 
  Country: None (occurrence: None)
  Receive Date: 20061017
  Receipt Date: 20061004
  Transmission Date: 20070319
  Serious: Yes (Death, Other)
  Sender: FDA-Public Use
  Company Number: 2006117418

PATIENT
  Age: 67 Year
  Sex: Male

DRUGS (6)
  1. DALACIN (CLINDAMYCIN HYDROCHLORIDE) [Suspect]
     Indication: INFECTION
     Dosage: 600 MG, INTRAVENOUS
     Route: 042
  2. MEROPEN (MEROPENEM) [Suspect]
     Indication: INFECTION
     Dosage: INTRAVENOUS
     Route: 042
  3. MICAFUNGIN (MICAFUNGIN) [Suspect]
     Indication: INFECTION
     Dosage: INTRAVENOUS
     Route: 042
  4. MEROPEN (MEROPENEM) [Concomitant]
  5. ALL OTHER THERAPEUTIC PRODUCTS (ALL OTHER THERAPEUTIC PRODUCTS) [Concomitant]
  6. PREDNISOLONE [Concomitant]

REACTIONS (7)
  - ASCITES [None]
  - DISEASE PROGRESSION [None]
  - GASTROINTESTINAL NECROSIS [None]
  - MENINGITIS [None]
  - MUCORMYCOSIS [None]
  - PERITONITIS [None]
  - PSEUDOMEMBRANOUS COLITIS [None]
